FAERS Safety Report 5067428-0 (Version None)
Quarter: 2006Q3

REPORT INFORMATION
  Report Type: 
  Country: None (occurrence: None)
  Receive Date: 20060726
  Receipt Date: 20060616
  Transmission Date: 20061208
  Serious: No
  Sender: FDA-Public Use
  Company Number: 34698

PATIENT
  Age: 33 Year
  Sex: Female

DRUGS (2)
  1. BRINZOLAMIDE 1% SUSPENSION [Suspect]
     Indication: GLAUCOMA
     Dosage: 2 GTTS OU BID OPHT
     Route: 047
  2. BRIMONIDINE TARTRATE 0.2% SOLN. [Concomitant]

REACTIONS (2)
  - ABORTION SPONTANEOUS [None]
  - DRUG EXPOSURE DURING PREGNANCY [None]
